FAERS Safety Report 4282522-X (Version None)
Quarter: 2004Q1

REPORT INFORMATION
  Report Type: 
  Country: None (occurrence: None)
  Receive Date: 20040129
  Receipt Date: 20040113
  Transmission Date: 20041129
  Serious: Yes (Death)
  Sender: FDA-Public Use
  Company Number: 701388

PATIENT
  Age: 60 Year
  Sex: Female

DRUGS (11)
  1. AMEVIVE [Suspect]
     Indication: PSORIASIS
     Dosage: 15 MG QW IM
     Route: 030
     Dates: start: 20030502, end: 20030711
  2. SEPTRA DS [Concomitant]
  3. LIPITOR [Concomitant]
  4. LOTREL [Concomitant]
  5. DICLOFENAC [Concomitant]
  6. ASPIRIN [Concomitant]
  7. PREDNISONE [Concomitant]
  8. CLARITIN [Concomitant]
  9. CYCLOSPORINE [Concomitant]
  10. METHOTREXATE [Concomitant]
  11. SORIATANE [Concomitant]

REACTIONS (1)
  - BRAIN NEOPLASM [None]
